FAERS Safety Report 12643213 (Version 1)
Quarter: 2016Q3

REPORT INFORMATION
  Report Type: Other
  Country: US (occurrence: US)
  Receive Date: 20160811
  Receipt Date: 20160811
  Transmission Date: 20161109
  Serious: No
  Sender: FDA-Public Use
  Company Number: US-GLENMARK PHARMACEUTICALS INC, USA.-2015GMK018624

PATIENT

DRUGS (1)
  1. ONDANSETRON HYDROCHLORIDE TABLETS [Suspect]
     Active Substance: ONDANSETRON HYDROCHLORIDE
     Indication: PRODUCT USED FOR UNKNOWN INDICATION
     Dosage: 1 DF, (DAILY AS NEEDED)
     Route: 048

REACTIONS (5)
  - Malaise [Unknown]
  - Accidental overdose [Unknown]
  - Vomiting [Unknown]
  - Product label issue [Unknown]
  - Nausea [Unknown]
